FAERS Safety Report 12898131 (Version 1)
Quarter: 2016Q4

REPORT INFORMATION
  Report Type: Spontaneous
  Country: US (occurrence: US)
  Receive Date: 20161031
  Receipt Date: 20161031
  Transmission Date: 20170207
  Serious: Yes (Hospitalization)
  Sender: FDA-Public Use
  Company Number: US-MYLANLABS-2016M1046642

PATIENT

DRUGS (1)
  1. VALPROIC ACID. [Suspect]
     Active Substance: VALPROIC ACID
     Indication: GENERALISED TONIC-CLONIC SEIZURE
     Dosage: 2500 MG, QD
     Route: 048
     Dates: start: 2015, end: 20151120

REACTIONS (5)
  - Drug ineffective [Recovered/Resolved]
  - Drug prescribing error [Recovered/Resolved]
  - Oesophageal pain [Recovered/Resolved]
  - Pancreatitis [Not Recovered/Not Resolved]
  - Hypersensitivity [Recovered/Resolved]

NARRATIVE: CASE EVENT DATE: 2015
